FAERS Safety Report 21889775 (Version 1)
Quarter: 2023Q1

REPORT INFORMATION
  Report Type: Spontaneous
  Country: TR (occurrence: TR)
  Receive Date: 20230120
  Receipt Date: 20230120
  Transmission Date: 20230418
  Serious: Yes (Hospitalization, Other)
  Sender: FDA-Public Use
  Company Number: TR-MLMSERVICE-2023010540255411

PATIENT
  Age: 24 Year
  Sex: Female

DRUGS (1)
  1. HYDROXYCHLOROQUINE [Suspect]
     Active Substance: HYDROXYCHLOROQUINE
     Indication: COVID-19

REACTIONS (3)
  - Exposure via breast milk [Unknown]
  - Acute generalised exanthematous pustulosis [Recovering/Resolving]
  - Staphylococcal infection [Recovering/Resolving]
